FAERS Safety Report 5410778-6 (Version None)
Quarter: 2007Q3

REPORT INFORMATION
  Report Type: 
  Country: None (occurrence: None)
  Receive Date: 20070810
  Receipt Date: 20070413
  Transmission Date: 20080115
  Serious: No
  Sender: FDA-Public Use
  Company Number: A0647202A

PATIENT
  Age: 38 Year
  Sex: Male

DRUGS (4)
  1. PAXIL CR [Suspect]
     Indication: PANIC DISORDER
     Dosage: 25MG PER DAY
     Route: 048
  2. PAXIL CR [Suspect]
     Dosage: 25MG TWICE PER DAY
     Route: 048
     Dates: start: 20030101
  3. WELLBUTRIN [Suspect]
     Indication: PANIC DISORDER
     Dosage: 100MG PER DAY
     Route: 048
     Dates: start: 20030101
  4. CLONAZEPAM [Concomitant]

REACTIONS (7)
  - ABNORMAL DREAMS [None]
  - DIARRHOEA [None]
  - DIZZINESS [None]
  - INSOMNIA [None]
  - NIGHTMARE [None]
  - PANIC REACTION [None]
  - STOMACH DISCOMFORT [None]
